FAERS Safety Report 7969854-6 (Version None)
Quarter: 2011Q4

REPORT INFORMATION
  Report Type: 
  Country: None (occurrence: None)
  Receive Date: 20111212
  Receipt Date: 20111202
  Transmission Date: 20120403
  Serious: Yes (Hospitalization)
  Sender: FDA-Public Use
  Company Number: US-US-EMD SERONO, INC.-7100133

PATIENT
  Sex: Male

DRUGS (3)
  1. CRESTOR [Concomitant]
  2. VITAMIN D [Concomitant]
  3. EGRIFTA [Suspect]
     Indication: LIPODYSTROPHY ACQUIRED
     Route: 058
     Dates: start: 20110301

REACTIONS (7)
  - ARTHRALGIA [None]
  - VOMITING [None]
  - HEADACHE [None]
  - NAUSEA [None]
  - VISION BLURRED [None]
  - MIGRAINE [None]
  - MYALGIA [None]
